FAERS Safety Report 12644160 (Version 1)
Quarter: 2016Q3

REPORT INFORMATION
  Report Type: Spontaneous
  Country: US (occurrence: US)
  Receive Date: 20160811
  Receipt Date: 20160811
  Transmission Date: 20161109
  Serious: Yes (Other)
  Sender: FDA-Public Use
  Company Number: US-GLAXOSMITHKLINE-US2016GSK115310

PATIENT
  Sex: Male

DRUGS (2)
  1. BENZOYL PEROXIDE. [Suspect]
     Active Substance: BENZOYL PEROXIDE
     Indication: HERPES SIMPLEX
     Dosage: UNK UNK, U
  2. VALTREX [Suspect]
     Active Substance: VALACYCLOVIR HYDROCHLORIDE
     Indication: HERPES SIMPLEX
     Dosage: UNK UNK, U

REACTIONS (3)
  - Therapeutic response delayed [Unknown]
  - Brain neoplasm malignant [Not Recovered/Not Resolved]
  - Herpes simplex [Not Recovered/Not Resolved]
